FAERS Safety Report 8134760-3 (Version None)
Quarter: 2012Q1

REPORT INFORMATION
  Report Type: 
  Country: None (occurrence: None)
  Receive Date: 20120209
  Receipt Date: 20120130
  Transmission Date: 20120608
  Serious: Yes (Hospitalization)
  Sender: FDA-Public Use
  Company Number: 1000025969

PATIENT
  Age: 78 Year
  Sex: Male
  Weight: 77 kg

DRUGS (5)
  1. DILTIAZEM HYDROCHLORIDE [Concomitant]
  2. VENLAFAXINE [Concomitant]
  3. AVODART [Concomitant]
  4. MEMANTINE HYDROCHLORIDE [Suspect]
     Indication: DEMENTIA ALZHEIMER'S TYPE
     Dosage: 20 MG (20 MG, 1 IN  1 D)
     Dates: start: 20110703, end: 20111201
  5. REMINYL LP (GALANTAMINE HYDROCHLORIDE) [Concomitant]

REACTIONS (3)
  - CEREBELLAR SYNDROME [None]
  - FALL [None]
  - GAIT DISTURBANCE [None]
